FAERS Safety Report 6709130-2 (Version None)
Quarter: 2010Q2

REPORT INFORMATION
  Report Type: 
  Country: None (occurrence: None)
  Receive Date: 20100504
  Receipt Date: 20100423
  Transmission Date: 20101027
  Serious: No
  Sender: FDA-Public Use
  Company Number: US-ROXANE LABORATORIES, INC.-2010-RO-00056RO

PATIENT
  Age: 45 Year
  Sex: Male

DRUGS (3)
  1. LITHIUM CARBONATE [Suspect]
     Indication: BIPOLAR DISORDER
     Dosage: 1200 MG
  2. SEROQUEL [Concomitant]
  3. NEURONTIN [Concomitant]

REACTIONS (2)
  - DENTAL NECROSIS [None]
  - TOOTH DISORDER [None]
